FAERS Safety Report 6651470-X (Version None)
Quarter: 2010Q1

REPORT INFORMATION
  Report Type: 
  Country: None (occurrence: None)
  Receive Date: 20100325
  Receipt Date: 20100309
  Transmission Date: 20100710
  Serious: No
  Sender: FDA-Public Use
  Company Number: CH-ROCHE-689926

PATIENT
  Sex: Female
  Weight: 3.7 kg

DRUGS (1)
  1. TAMIFLU [Suspect]
     Indication: INFLUENZA
     Dosage: INDICATION: INFUENZA DUE TO IDENTIFIED INFLUENZA VIRUS
     Route: 064
     Dates: start: 20091117, end: 20091121

REACTIONS (2)
  - DRUG EXPOSURE DURING PREGNANCY [None]
  - NO ADVERSE EVENT [None]
